FAERS Safety Report 4898143-1 (Version None)
Quarter: 2006Q1

REPORT INFORMATION
  Report Type: 
  Country: None (occurrence: None)
  Receive Date: 20060130
  Receipt Date: 20060118
  Transmission Date: 20060701
  Serious: Yes (Other)
  Sender: FDA-Public Use
  Company Number: 2006-01-1135

PATIENT
  Age: 70 Year
  Sex: Female

DRUGS (12)
  1. INTEGRILIN [Suspect]
     Indication: ACUTE MYOCARDIAL INFARCTION
     Dosage: INTRAVENOUS
     Route: 042
     Dates: start: 20060103
  2. BLINDED STUDY CATEGORY - NON-SCHERING DRUGS [Suspect]
     Dates: start: 20060103
  3. ASPIRIN [Concomitant]
  4. LASIX [Concomitant]
  5. HEPARIN [Concomitant]
  6. DOPAMINE [Concomitant]
  7. ZOFRAN [Concomitant]
  8. GLIPIZIDE [Concomitant]
  9. LIPITOR [Concomitant]
  10. INSULIN [Concomitant]
  11. VERSED [Concomitant]
  12. NEOSYNEPHRINE BADRIAL [Concomitant]

REACTIONS (5)
  - CARDIOGENIC SHOCK [None]
  - HAEMATOCRIT DECREASED [None]
  - HAEMOGLOBIN DECREASED [None]
  - NAUSEA [None]
  - VOMITING [None]
